FAERS Safety Report 9519049 (Version 1)
Quarter: 2013Q1

REPORT INFORMATION
  Report Type: Spontaneous
  Country: US (occurrence: None)
  Receive Date: 20130305
  Receipt Date: 20130305
  Transmission Date: 20140127
  Serious: Yes (Other)
  Sender: FDA-Public Use
  Company Number: 163-21880-12070680

PATIENT
  Age: 82 Year
  Sex: Female

DRUGS (7)
  1. REVLIMID [Suspect]
     Indication: MYELODYSPLASTIC SYNDROME
     Dosage: 5 MG, 21 IN 21 D, PO
     Route: 048
     Dates: start: 20120505, end: 20120627
  2. PRAVASTATIN (PRAVASTATIN) (TABLETS) [Concomitant]
  3. PLAVIX (CLOPIDOGREL SULFATE) (TABLETS) [Concomitant]
  4. CRESTOR (ROSUVASTATIN) (TABLETS) [Concomitant]
  5. OMEPRAZLE (OMEPRAZOLE) (CAPSULES) [Concomitant]
  6. LEVOTHYROXIN (LEVOTHYROXINE SODIUM) (TABLETS) [Concomitant]
  7. ATENOLOL (ATENOLOL) (TABLETS) [Concomitant]

REACTIONS (3)
  - Thrombocytopenia [None]
  - Neutropenia [None]
  - Drug intolerance [None]
